FAERS Safety Report 14677147 (Version 1)
Quarter: 2018Q1

REPORT INFORMATION
  Report Type: Spontaneous
  Country: US (occurrence: US)
  Receive Date: 20180324
  Receipt Date: 20180324
  Transmission Date: 20180509
  Serious: No
  Sender: FDA-Public Use
  Company Number: US-JNJFOC-20180310628

PATIENT
  Age: 7 Decade
  Sex: Male
  Weight: 97.52 kg

DRUGS (2)
  1. MENS ROGAINE [Suspect]
     Active Substance: MINOXIDIL
     Indication: ALOPECIA
     Dosage: 1ML TO THE BACK CORTEX AND THEN ABOUT 1/2 ML TO THE FRONT AREA
     Route: 061
     Dates: start: 2016
  2. MENS ROGAINE [Suspect]
     Active Substance: MINOXIDIL
     Route: 061

REACTIONS (2)
  - Incorrect dose administered [Unknown]
  - Product administered at inappropriate site [Unknown]
